FAERS Safety Report 9826805 (Version 1)
Quarter: 2014Q1

REPORT INFORMATION
  Report Type: Spontaneous
  Country: US (occurrence: None)
  Receive Date: 20140115
  Receipt Date: 20140115
  Transmission Date: 20141002
  Serious: Yes (Death)
  Sender: FDA-Public Use
  Company Number: UTC-042787

PATIENT
  Age: 64 Year
  Sex: Female
  Weight: 68.18 kg

DRUGS (2)
  1. REMODULIN [Suspect]
     Indication: PULMONARY ARTERIAL HYPERTENSION
     Dosage: 0.028 UG/KG, 1 IN 1 MIN
     Route: 058
     Dates: start: 20130610
  2. LETAIRIS (AMBRISENTAN) (UNKNOWN) [Concomitant]

REACTIONS (1)
  - Death [None]
